FAERS Safety Report 5799521-9 (Version None)
Quarter: 2008Q3

REPORT INFORMATION
  Report Type: 
  Country: None (occurrence: None)
  Receive Date: 20080703
  Receipt Date: 20080701
  Transmission Date: 20090109
  Serious: Yes (Hospitalization)
  Sender: FDA-Public Use
  Company Number: GB-TEVA-173660ISR

PATIENT
  Age: 64 Year
  Sex: Male

DRUGS (6)
  1. ATENOLOL [Suspect]
  2. METHOTREXATE [Suspect]
  3. PREDNISOLONE [Suspect]
  4. DI-GESIC [Suspect]
  5. ETANERCEPT [Suspect]
     Indication: RHEUMATOID ARTHRITIS
     Dates: start: 20060323
  6. ROFECOXIB [Suspect]

REACTIONS (2)
  - DIVERTICULUM [None]
  - ENTEROVESICAL FISTULA [None]
